FAERS Safety Report 10160731 (Version 1)
Quarter: 2014Q2

REPORT INFORMATION
  Report Type: Spontaneous
  Country: AT (occurrence: AT)
  Receive Date: 20140508
  Receipt Date: 20140508
  Transmission Date: 20141212
  Serious: Yes (Death, Other)
  Sender: FDA-Public Use
  Company Number: AT-009507513-1405AUT003605

PATIENT
  Sex: Male

DRUGS (1)
  1. TEMODAL [Suspect]
     Dosage: UNK
     Route: 048

REACTIONS (1)
  - Pancytopenia [Fatal]
